FAERS Safety Report 5171703-9 (Version None)
Quarter: 2006Q4

REPORT INFORMATION
  Report Type: 
  Country: None (occurrence: None)
  Receive Date: 20061205
  Receipt Date: 20061116
  Transmission Date: 20070319
  Serious: No
  Sender: FDA-Public Use
  Company Number: TPA2006A02073

PATIENT
  Sex: Female

DRUGS (1)
  1. ROZEREM [Suspect]
     Dosage: 8 MG, HS , PER ORAL
     Route: 048
     Dates: start: 20061001, end: 20061001

REACTIONS (2)
  - DRUG INEFFECTIVE [None]
  - SELF-MEDICATION [None]
